FAERS Safety Report 4753249-2 (Version None)
Quarter: 2005Q3

REPORT INFORMATION
  Report Type: 
  Country: None (occurrence: None)
  Receive Date: 20050826
  Receipt Date: 20050810
  Transmission Date: 20060218
  Serious: Yes (Other)
  Sender: FDA-Public Use
  Company Number: PHEH2005US08890

PATIENT
  Age: 53 Year
  Sex: Female

DRUGS (4)
  1. ZOMETA [Suspect]
     Indication: BREAST CANCER METASTATIC
     Dosage: 4 MG, QMO
     Route: 042
     Dates: start: 20030422, end: 20040501
  2. ZOMETA [Suspect]
     Dates: start: 20040701, end: 20041001
  3. ZOMETA [Suspect]
     Dosage: 4 MG, QMO
     Route: 042
     Dates: start: 20050101
  4. FEMARA [Concomitant]
     Dates: end: 20050720

REACTIONS (7)
  - ABSCESS DRAINAGE [None]
  - ABSCESS JAW [None]
  - BONE DEBRIDEMENT [None]
  - BONE FRAGMENTATION [None]
  - BONE SCAN ABNORMAL [None]
  - IMPAIRED HEALING [None]
  - TOOTH EXTRACTION [None]
